FAERS Safety Report 7594921-9 (Version None)
Quarter: 2011Q3

REPORT INFORMATION
  Report Type: 
  Country: None (occurrence: None)
  Receive Date: 20110707
  Receipt Date: 20110630
  Transmission Date: 20111222
  Serious: Yes (Death)
  Sender: FDA-Public Use
  Company Number: US-PFIZER INC-2011146684

PATIENT
  Sex: Male

DRUGS (1)
  1. TORISEL [Suspect]
     Indication: MALIGNANT URINARY TRACT NEOPLASM
     Dosage: 25 MG, UNK
     Dates: start: 20110623, end: 20110623

REACTIONS (1)
  - DEATH [None]
